FAERS Safety Report 7439369-2 (Version None)
Quarter: 2011Q2

REPORT INFORMATION
  Report Type: 
  Country: None (occurrence: None)
  Receive Date: 20110427
  Receipt Date: 20110406
  Transmission Date: 20111010
  Serious: No
  Sender: FDA-Public Use
  Company Number: US-PFIZER INC-2011076976

PATIENT
  Sex: Male
  Weight: 104 kg

DRUGS (4)
  1. DILANTIN [Concomitant]
     Dosage: UNK
  2. MECLIZINE HCL [Suspect]
     Dosage: UNK
  3. ANTIVERT [Suspect]
     Indication: MENIERE'S DISEASE
     Dosage: 25 MG, 4X/DAY
     Route: 048
  4. ANTIVERT [Suspect]
     Indication: VERTIGO

REACTIONS (2)
  - WRONG TECHNIQUE IN DRUG USAGE PROCESS [None]
  - DRUG INEFFECTIVE [None]
